FAERS Safety Report 7505808-1 (Version None)
Quarter: 2011Q2

REPORT INFORMATION
  Report Type: 
  Country: None (occurrence: None)
  Receive Date: 20110526
  Receipt Date: 20110512
  Transmission Date: 20111010
  Serious: Yes (Disabling)
  Sender: FDA-Public Use
  Company Number: AU-CELGENEUS-AUSAB-11-0267

PATIENT
  Sex: Female

DRUGS (5)
  1. PROCHLORPERAZINE TAB [Concomitant]
     Route: 065
  2. ABRAXANE [Suspect]
     Indication: BREAST CANCER
     Route: 065
     Dates: start: 20110301, end: 20110315
  3. DEXAMETHASONE [Concomitant]
     Route: 065
  4. PALONOSETRON [Concomitant]
     Route: 065
  5. ZOMETA [Concomitant]
     Route: 065

REACTIONS (1)
  - CELLULITIS [None]
